FAERS Safety Report 4752838-9 (Version None)
Quarter: 2005Q3

REPORT INFORMATION
  Report Type: 
  Country: None (occurrence: None)
  Receive Date: 20050714
  Receipt Date: 20041028
  Transmission Date: 20060218
  Serious: Yes (Hospitalization)
  Sender: FDA-Public Use
  Company Number: 200417102US

PATIENT
  Age: 41 Year
  Sex: Female
  Weight: 62 kg

DRUGS (26)
  1. TAXOTERE [Suspect]
     Indication: NON-SMALL CELL LUNG CANCER
     Dosage: 20 MG/M**2 QW IV
     Route: 042
     Dates: start: 20040901
  2. CARBOPLATIN [Concomitant]
  3. MORPHINE SULFATE [Concomitant]
  4. MORPHINE SULFATE (MSIR) [Concomitant]
  5. MEGESTREL ACETATE (MEGACE) [Concomitant]
  6. HYDROCODONE BITARTRATE (HYCODAN) [Concomitant]
  7. LACTULOSE [Concomitant]
  8. CLONAZEPAM (VALPAX) [Concomitant]
  9. ZOLOFT [Concomitant]
  10. GUAIFENESIN (HUMIBID - SLOW RELEASE) [Concomitant]
  11. ATENOLOL [Concomitant]
  12. FLUTICASONE PROPIONATE, SALMETEROL XINAFOATE (ADVAIR) [Concomitant]
  13. DIFLUCAN [Concomitant]
  14. PANTOPRAZOLE SODIUM [Concomitant]
  15. DOCUSATE SODIUM (COLACE) [Concomitant]
  16. CLONAZEPAM (CLONOPIN) [Concomitant]
  17. PROMETHAZINE HCL [Concomitant]
  18. METHADONE HCL [Concomitant]
  19. PREDNISONE TAB [Concomitant]
  20. HYOSCYAMINE SULFATE (LEVBID) [Concomitant]
  21. DARBEPOETIN ALFA (ARANESP) [Concomitant]
  22. TRAZODONE HYDROCHLORIDE (DESYREL) [Concomitant]
  23. KYTRIL [Concomitant]
  24. TIOTROPIUM BROMIDE (TIOTROPIUM BROMIDE ^SPIRIVA^) [Concomitant]
  25. ATIVAN [Concomitant]
  26. HYDROCORTISONE (HYDROCORTISONE CREAM) [Concomitant]

REACTIONS (3)
  - DYSPNOEA [None]
  - LUNG INFILTRATION [None]
  - OXYGEN SATURATION DECREASED [None]
